FAERS Safety Report 10464016 (Version 2)
Quarter: 2014Q3

REPORT INFORMATION
  Report Type: Spontaneous
  Country: DE (occurrence: DE)
  Receive Date: 20140919
  Receipt Date: 20140919
  Transmission Date: 20150326
  Serious: Yes (Hospitalization)
  Sender: FDA-Public Use
  Company Number: DE-BAYER-2014-128308

PATIENT
  Age: 27 Year
  Sex: Female

DRUGS (1)
  1. MIRENA [Suspect]
     Active Substance: LEVONORGESTREL
     Dosage: 20 MCG/24HR, CONT
     Route: 015
     Dates: start: 2014

REACTIONS (3)
  - Medical device pain [Not Recovered/Not Resolved]
  - Device use error [Not Recovered/Not Resolved]
  - Bartholin^s abscess [Not Recovered/Not Resolved]

NARRATIVE: CASE EVENT DATE: 2014
